FAERS Safety Report 9204031 (Version 1)
Quarter: 2013Q1

REPORT INFORMATION
  Report Type: Spontaneous
  Country: US (occurrence: None)
  Receive Date: 20130329
  Receipt Date: 20130329
  Transmission Date: 20140127
  Serious: Yes (Hospitalization)
  Sender: FDA-Public Use
  Company Number: JPI-P-030808

PATIENT
  Age: 55 Year
  Sex: Female
  Weight: 59.42 kg

DRUGS (1)
  1. XYREM [Suspect]
     Indication: NARCOLEPSY
     Route: 048
     Dates: start: 20130201, end: 20130101

REACTIONS (4)
  - Moaning [None]
  - Myocardial infarction [None]
  - Anuria [None]
  - Somnolence [None]
